FAERS Safety Report 12074037 (Version 2)
Quarter: 2016Q1

REPORT INFORMATION
  Report Type: Report from Study
  Country: GT (occurrence: GT)
  Receive Date: 20160212
  Receipt Date: 20160226
  Transmission Date: 20160526
  Serious: Yes (Other)
  Sender: FDA-Public Use
  Company Number: PHHY2016GT018349

PATIENT
  Sex: Female
  Weight: 95.24 kg

DRUGS (3)
  1. EXFORGE HCT [Suspect]
     Active Substance: AMLODIPINE BESYLATE\HYDROCHLOROTHIAZIDE\VALSARTAN
     Indication: HYPERTENSION
     Dosage: 1 DF, UNK (160/5/12.5 MG)
     Route: 065
     Dates: end: 20160209
  2. CRESTOR [Concomitant]
     Active Substance: ROSUVASTATIN CALCIUM
     Indication: BLOOD CHOLESTEROL ESTERASE INCREASED
     Dosage: 1 DF, QD
     Route: 065
  3. DAFLON (DIOSMIN/HESPERIDIN) [Concomitant]
     Active Substance: DIOSMIN\HESPERIDIN
     Indication: VEIN DISORDER
     Route: 065

REACTIONS (3)
  - Cerebral ischaemia [Recovering/Resolving]
  - Hypoacusis [Unknown]
  - Incontinence [Unknown]
